FAERS Safety Report 9931127 (Version 1)
Quarter: 2014Q1

REPORT INFORMATION
  Report Type: Report from Study
  Country: NL (occurrence: NL)
  Receive Date: 20140227
  Receipt Date: 20140227
  Transmission Date: 20141002
  Serious: Yes (Death, Other)
  Sender: FDA-Public Use
  Company Number: PHHY2014NL023983

PATIENT
  Age: 80 Year
  Sex: Female

DRUGS (3)
  1. ACLASTA [Suspect]
     Indication: OSTEOPOROSIS
     Dosage: 5 MG, PER 52 WEEKS
     Route: 042
     Dates: start: 20110223
  2. ACLASTA [Suspect]
     Dosage: 5 MG, PER 52 WEEKS
     Route: 042
     Dates: start: 20120302
  3. ACLASTA [Suspect]
     Dosage: 5 MG, PER 52 WEEKS
     Route: 042
     Dates: start: 20130301

REACTIONS (2)
  - Death [Fatal]
  - General physical health deterioration [Unknown]
